FAERS Safety Report 7929799-4 (Version None)
Quarter: 2011Q4

REPORT INFORMATION
  Report Type: 
  Country: None (occurrence: None)
  Receive Date: 20111121
  Receipt Date: 20111111
  Transmission Date: 20120403
  Serious: Yes (Other)
  Sender: FDA-Public Use
  Company Number: CA-JNJFOC-20111105689

PATIENT
  Sex: Male

DRUGS (2)
  1. REMICADE [Suspect]
     Indication: COLITIS ULCERATIVE
     Route: 042
     Dates: start: 20110101
  2. PREMEDICATION [Concomitant]
     Route: 065

REACTIONS (2)
  - ROAD TRAFFIC ACCIDENT [None]
  - SPINAL FRACTURE [None]
